FAERS Safety Report 9253712 (Version 3)
Quarter: 2014Q1

REPORT INFORMATION
  Report Type: Spontaneous
  Country: US (occurrence: US)
  Receive Date: 20130425
  Receipt Date: 20140107
  Transmission Date: 20141002
  Serious: Yes (Other)
  Sender: FDA-Public Use
  Company Number: US-ASTRAZENECA-2013SE27524

PATIENT
  Age: 9 Year
  Sex: Male
  Weight: 34.9 kg

DRUGS (9)
  1. NEXIUM [Suspect]
     Route: 048
     Dates: start: 200810, end: 201011
  2. NEXIUM [Suspect]
     Route: 048
     Dates: start: 20090203
  3. NEXIUM [Suspect]
     Route: 048
     Dates: start: 20100820
  4. DITROPAN [Concomitant]
  5. BACLOFEN [Concomitant]
  6. AMBIEN [Concomitant]
     Dates: start: 20090126
  7. OXYBUTIN [Concomitant]
  8. LEVAQUIN [Concomitant]
     Dates: start: 20090911
  9. DIAZEPAM [Concomitant]
     Dates: start: 20090911

REACTIONS (8)
  - Femur fracture [Unknown]
  - Osteoporosis [Unknown]
  - Bone disorder [Unknown]
  - Multiple fractures [Unknown]
  - Spinal deformity [Unknown]
  - Calcium deficiency [Unknown]
  - Vitamin D deficiency [Unknown]
  - Osteopenia [Unknown]
